FAERS Safety Report 17654015 (Version 1)
Quarter: 2020Q2

REPORT INFORMATION
  Report Type: Spontaneous
  Country: CA (occurrence: CA)
  Receive Date: 20200410
  Receipt Date: 20200410
  Transmission Date: 20200713
  Serious: Yes (Other)
  Sender: FDA-Public Use
  Company Number: CA-SAMSUNG BIOEPIS-SB-2020-11740

PATIENT
  Age: 31 Year
  Sex: Male
  Weight: 73 kg

DRUGS (6)
  1. PENTASA [Concomitant]
     Active Substance: MESALAMINE
     Route: 048
  2. PENTASA [Concomitant]
     Active Substance: MESALAMINE
     Route: 048
  3. IRON [Concomitant]
     Active Substance: IRON
     Indication: PRODUCT USED FOR UNKNOWN INDICATION
     Route: 048
  4. INFLIXIMAB [Suspect]
     Active Substance: INFLIXIMAB
     Indication: COLITIS ULCERATIVE
     Route: 042
  5. HYDROCORTISONE. [Concomitant]
     Active Substance: HYDROCORTISONE
     Indication: PREMEDICATION
     Route: 042
  6. PENTASA [Concomitant]
     Active Substance: MESALAMINE
     Indication: PRODUCT USED FOR UNKNOWN INDICATION
     Route: 048

REACTIONS (10)
  - Chest discomfort [Recovered/Resolved]
  - Feeding disorder [Recovered/Resolved]
  - Off label use [Recovered/Resolved]
  - Heart rate irregular [Recovered/Resolved]
  - Pharyngeal hypoaesthesia [Recovered/Resolved]
  - Chills [Recovered/Resolved]
  - Condition aggravated [Recovered/Resolved]
  - Oropharyngeal pain [Recovered/Resolved]
  - Throat tightness [Recovered/Resolved]
  - Viral infection [Recovered/Resolved]
